FAERS Safety Report 11757601 (Version 1)
Quarter: 2015Q4

REPORT INFORMATION
  Report Type: Report from Study
  Country: CA (occurrence: CA)
  Receive Date: 20151120
  Receipt Date: 20151120
  Transmission Date: 20160304
  Serious: Yes (Death, Hospitalization, Other)
  Sender: FDA-Public Use
  Company Number: CA-ROCHE-ITM201410IM007364

PATIENT
  Age: 77 Year
  Sex: Male

DRUGS (8)
  1. ESBRIET [Suspect]
     Active Substance: PIRFENIDONE
     Route: 048
     Dates: start: 201505
  2. ADVAIR HFA [Concomitant]
     Active Substance: FLUTICASONE PROPIONATE\SALMETEROL XINAFOATE
     Indication: CHRONIC OBSTRUCTIVE PULMONARY DISEASE
  3. RABEPRAZOLE [Concomitant]
     Active Substance: RABEPRAZOLE
     Route: 048
  4. ATIVAN [Concomitant]
     Active Substance: LORAZEPAM
  5. RHINARIS (CANADA) [Concomitant]
     Route: 065
  6. PARIET [Concomitant]
     Active Substance: RABEPRAZOLE SODIUM
  7. LASIX [Concomitant]
     Active Substance: FUROSEMIDE
     Route: 048
  8. ESBRIET [Suspect]
     Active Substance: PIRFENIDONE
     Indication: IDIOPATHIC PULMONARY FIBROSIS
     Route: 048
     Dates: start: 20130724, end: 2014

REACTIONS (5)
  - Fatigue [Not Recovered/Not Resolved]
  - Upper gastrointestinal haemorrhage [Fatal]
  - Coma [Fatal]
  - Hepatic cirrhosis [Unknown]
  - Listless [Not Recovered/Not Resolved]

NARRATIVE: CASE EVENT DATE: 201510
